FAERS Safety Report 13551964 (Version 1)
Quarter: 2017Q2

REPORT INFORMATION
  Report Type: Spontaneous
  Country: CL (occurrence: CL)
  Receive Date: 20170516
  Receipt Date: 20170516
  Transmission Date: 20170830
  Serious: Yes (Other)
  Sender: FDA-Public Use
  Company Number: PHHY2017CL051062

PATIENT
  Age: 39 Year
  Sex: Female
  Weight: 50 kg

DRUGS (3)
  1. FEMARA [Suspect]
     Active Substance: LETROZOLE
     Indication: PRODUCT USED FOR UNKNOWN INDICATION
     Dosage: 2.5 MG, BID
     Route: 048
     Dates: start: 20160712
  2. CLOMIPHENE [Concomitant]
     Active Substance: CLOMIPHENE
     Indication: PRODUCT USED FOR UNKNOWN INDICATION
     Dosage: 50 MG, UNK
     Route: 065
  3. SAYANA [Concomitant]
     Active Substance: MEDROXYPROGESTERONE
     Indication: PRODUCT USED FOR UNKNOWN INDICATION
     Dosage: UNK
     Route: 065

REACTIONS (6)
  - Amenorrhoea [Unknown]
  - Maternal exposure during pregnancy [Unknown]
  - Infertility female [Unknown]
  - Haemorrhage [Unknown]
  - Contraindicated product administered [Unknown]
  - Overdose [Unknown]

NARRATIVE: CASE EVENT DATE: 20160712
